FAERS Safety Report 17985893 (Version 1)
Quarter: 2020Q3

REPORT INFORMATION
  Report Type: Spontaneous
  Country: US (occurrence: US)
  Receive Date: 20200706
  Receipt Date: 20200706
  Transmission Date: 20201103
  Serious: No
  Sender: FDA-Public Use
  Company Number: US-JNJFOC-20200637241

PATIENT
  Age: 88 Year
  Sex: Female
  Weight: 104.42 kg

DRUGS (3)
  1. PHENELZINE SULFATE. [Concomitant]
     Active Substance: PHENELZINE SULFATE
     Indication: MAJOR DEPRESSION
     Route: 065
  2. GABAPENTIN. [Concomitant]
     Active Substance: GABAPENTIN
     Indication: PRODUCT USED FOR UNKNOWN INDICATION
     Route: 065
  3. ULTRAM [Suspect]
     Active Substance: TRAMADOL HYDROCHLORIDE
     Indication: PAIN
     Route: 065
     Dates: start: 202001

REACTIONS (3)
  - Dizziness [Not Recovered/Not Resolved]
  - Palpitations [Not Recovered/Not Resolved]
  - Adverse reaction [Not Recovered/Not Resolved]

NARRATIVE: CASE EVENT DATE: 20200201
